FAERS Safety Report 24860438 (Version 1)
Quarter: 2025Q1

REPORT INFORMATION
  Report Type: Spontaneous
  Country: US (occurrence: US)
  Receive Date: 20250120
  Receipt Date: 20250120
  Transmission Date: 20250409
  Serious: No
  Sender: JOHNSON AND JOHNSON
  Company Number: US-JNJFOC-20250104498

PATIENT
  Sex: Male

DRUGS (1)
  1. RYBREVANT [Suspect]
     Active Substance: AMIVANTAMAB-VMJW
     Indication: Product used for unknown indication
     Route: 065

REACTIONS (7)
  - Scab [Unknown]
  - Erythema [Unknown]
  - Blister [Unknown]
  - Skin irritation [Unknown]
  - Swelling face [Unknown]
  - Insomnia [Unknown]
  - Blood blister [Unknown]
